FAERS Safety Report 15499007 (Version 1)
Quarter: 2018Q4

REPORT INFORMATION
  Report Type: Spontaneous
  Country: US (occurrence: US)
  Receive Date: 20181005
  Receipt Date: 20181005
  Transmission Date: 20190205
  Serious: Yes (Disabling)
  Sender: FDA-Public Use
  Company Number: None

PATIENT
  Age: 24820 Day
  Sex: Male
  Weight: 79 kg

DRUGS (6)
  1. MAGNEVIST [Concomitant]
     Active Substance: GADOPENTETATE DIMEGLUMINE
  2. BENADRYL [Concomitant]
     Active Substance: DIPHENHYDRAMINE HYDROCHLORIDE
  3. GADOLINIUM CONTRAST AGENT [Suspect]
     Active Substance: GADOLINIUM
  4. LIPITOR [Concomitant]
     Active Substance: ATORVASTATIN CALCIUM
  5. VITAMIN D3 [Concomitant]
     Active Substance: CHOLECALCIFEROL
  6. CLARITIN [Concomitant]
     Active Substance: LORATADINE

REACTIONS (6)
  - Feeling abnormal [None]
  - Gait disturbance [None]
  - Paraesthesia [None]
  - Product complaint [None]
  - Contrast media toxicity [None]
  - Headache [None]

NARRATIVE: CASE EVENT DATE: 20180721
